FAERS Safety Report 7334991-6 (Version None)
Quarter: 2011Q1

REPORT INFORMATION
  Report Type: 
  Country: None (occurrence: None)
  Receive Date: 20110302
  Receipt Date: 20110302
  Transmission Date: 20110831
  Serious: No
  Sender: FDA-Public Use
  Company Number: None

PATIENT
  Sex: Female
  Weight: 74.8435 kg

DRUGS (1)
  1. EVISTA [Suspect]
     Indication: OSTEOPOROSIS
     Dosage: 1 TABLET ONCE DAILY
     Dates: start: 20100215, end: 20101222

REACTIONS (4)
  - BONE PAIN [None]
  - ARTHRITIS [None]
  - MYALGIA [None]
  - ARTHRALGIA [None]
